FAERS Safety Report 20101863 (Version 1)
Quarter: 2021Q4

REPORT INFORMATION
  Report Type: Spontaneous
  Country: JP (occurrence: JP)
  Receive Date: 20211123
  Receipt Date: 20211123
  Transmission Date: 20220303
  Serious: Yes (Hospitalization, Other)
  Sender: FDA-Public Use
  Company Number: JP-Merck Healthcare KGaA-9279797

PATIENT
  Age: 74 Year
  Sex: Male
  Weight: 69 kg

DRUGS (12)
  1. ERBITUX [Suspect]
     Active Substance: CETUXIMAB
     Indication: Rectal cancer
     Dosage: 430 MG, UNK
     Route: 041
     Dates: start: 20210727, end: 20210803
  2. MEKTOVI [Suspect]
     Active Substance: BINIMETINIB
     Indication: Rectal cancer
     Dosage: 45 MG, UNK
     Route: 048
     Dates: start: 20210727, end: 20210810
  3. BRAFTOVI [Suspect]
     Active Substance: ENCORAFENIB
     Indication: Rectal cancer
     Dosage: 300 MG, UNK
     Route: 048
     Dates: start: 20210727, end: 20210810
  4. IMIDAPRIL HYDROCHLORIDE [Concomitant]
     Active Substance: IMIDAPRIL HYDROCHLORIDE
     Indication: Product used for unknown indication
     Dosage: 5 MG, DAILY
     Route: 048
     Dates: end: 20210811
  5. TAMSULOSIN HYDROCHLORIDE [Concomitant]
     Active Substance: TAMSULOSIN HYDROCHLORIDE
     Indication: Product used for unknown indication
     Dosage: .2 MG, DAILY
  6. BISOPROLOL FUMARATE [Concomitant]
     Active Substance: BISOPROLOL FUMARATE
     Indication: Product used for unknown indication
     Dosage: 2.5 MG, DAILY
  7. ALLOPURINOL [Concomitant]
     Active Substance: ALLOPURINOL
     Indication: Product used for unknown indication
     Dosage: 100 MG, UNK
     Route: 048
     Dates: end: 20210811
  8. BEZAFIBRATE [Concomitant]
     Active Substance: BEZAFIBRATE
     Indication: Product used for unknown indication
     Dosage: 100 MG, DAILY
     Route: 048
     Dates: end: 20210811
  9. LINAGLIPTIN [Concomitant]
     Active Substance: LINAGLIPTIN
     Indication: Product used for unknown indication
     Dosage: 5 MG, DAILY
     Dates: start: 20201015
  10. RYZODEG 70/30 [Concomitant]
     Active Substance: INSULIN ASPART\INSULIN DEGLUDEC
     Indication: Product used for unknown indication
     Dosage: -1 UNK, DAILY
     Dates: start: 20210506
  11. NOVORAPID [Concomitant]
     Active Substance: INSULIN ASPART
     Indication: Product used for unknown indication
     Dosage: IMMEDIATELY BEFORE LUNCH AND SUPPER (LUNCH: AT 6 UNITS; SUPPER: AT 4 UNITS).
     Dates: start: 20210506
  12. HEPARINOIDE [Concomitant]
     Indication: Product used for unknown indication
     Dosage: SEVERAL TIMES PER DAY WHEN THE SKIN GOT DRIED.

REACTIONS (5)
  - Acute kidney injury [Recovering/Resolving]
  - Inflammation [Recovering/Resolving]
  - Constipation [Recovering/Resolving]
  - Urinary tract infection [Recovering/Resolving]
  - Diarrhoea [Unknown]

NARRATIVE: CASE EVENT DATE: 20210801
